FAERS Safety Report 6749002-0 (Version None)
Quarter: 2010Q2

REPORT INFORMATION
  Report Type: 
  Country: None (occurrence: None)
  Receive Date: 20100601
  Receipt Date: 20100519
  Transmission Date: 20101027
  Serious: Yes (Other)
  Sender: FDA-Public Use
  Company Number: PHHY2010TR32273

PATIENT

DRUGS (1)
  1. PIMECROLIMUS [Suspect]
     Indication: DERMATITIS ATOPIC

REACTIONS (1)
  - KAPOSI'S VARICELLIFORM ERUPTION [None]
